FAERS Safety Report 18829959 (Version 1)
Quarter: 2021Q1

REPORT INFORMATION
  Report Type: Spontaneous
  Country: US (occurrence: US)
  Receive Date: 20210201
  Receipt Date: 20210201
  Transmission Date: 20210419
  Serious: No
  Sender: FDA-Public Use
  Company Number: US-ABBVIE-20K-163-3624813-00

PATIENT
  Age: 59 Year
  Sex: Female
  Weight: 88.08 kg

DRUGS (1)
  1. HUMIRA [Suspect]
     Active Substance: ADALIMUMAB
     Indication: RHEUMATOID ARTHRITIS
     Route: 058
     Dates: start: 2018

REACTIONS (6)
  - Discomfort [Recovering/Resolving]
  - Injection site pain [Recovering/Resolving]
  - Arthralgia [Recovering/Resolving]
  - Device issue [Unknown]
  - Incorrect dose administered [Unknown]
  - Poor quality sleep [Recovering/Resolving]

NARRATIVE: CASE EVENT DATE: 202010
